FAERS Safety Report 26157860 (Version 1)
Quarter: 2025Q4

REPORT INFORMATION
  Report Type: Spontaneous
  Country: US (occurrence: None)
  Receive Date: 20251215
  Receipt Date: 20251215
  Transmission Date: 20260117
  Serious: Yes (Other)
  Sender: FDA-CTU
  Company Number: None

PATIENT
  Age: 69 Year
  Sex: Female

DRUGS (5)
  1. REPATHA [Suspect]
     Active Substance: EVOLOCUMAB
     Route: 058
  2. ACYCLOVIR TAB 800MG [Concomitant]
  3. AMITRIPTYLIN TAB 25MG [Concomitant]
  4. OZEMPIC INJ 2MG/3ML [Concomitant]
  5. REPATHA [Concomitant]
     Active Substance: EVOLOCUMAB

REACTIONS (1)
  - Cerebral aneurysm perforation [None]

NARRATIVE: CASE EVENT DATE: 20250901
